FAERS Safety Report 4802364-3 (Version None)
Quarter: 2005Q4

REPORT INFORMATION
  Report Type: 
  Country: None (occurrence: None)
  Receive Date: 20051012
  Receipt Date: 20051005
  Transmission Date: 20060501
  Serious: Yes (Other)
  Sender: FDA-Public Use
  Company Number: HQWYE324226APR05

PATIENT
  Age: 94 Year
  Sex: Female

DRUGS (1)
  1. CORDARONE [Suspect]
     Indication: DYSPNOEA
     Dosage: STARTED 4-5 YEARS AGO; MAY HAVE BEEN ONE MONTH LONGER THAN THE INTENDED 5-6 WKS

REACTIONS (2)
  - GLAUCOMA [None]
  - MACULAR DEGENERATION [None]
